FAERS Safety Report 8537684-2 (Version None)
Quarter: 2012Q3

REPORT INFORMATION
  Report Type: 
  Country: None (occurrence: None)
  Receive Date: 20120725
  Receipt Date: 20120723
  Transmission Date: 20120928
  Serious: Yes (Hospitalization)
  Sender: FDA-Public Use
  Company Number: PHHY2012AU059405

PATIENT
  Sex: Female

DRUGS (8)
  1. CLOZARIL [Suspect]
     Dosage: 100 MG
     Dates: start: 20090721
  2. LEXAPRO [Concomitant]
     Dosage: 30 MG, (IN MANE)
     Route: 048
  3. METFORMIN HYDROCHLORIDE [Concomitant]
     Dosage: 500 MG, (IN MANE)
     Route: 048
  4. CLOZARIL [Suspect]
     Dosage: 125 MG,
     Dates: start: 20120711
  5. BRENDA [Concomitant]
     Route: 048
  6. RALOXIFENE HCL [Concomitant]
     Dosage: 120 MG, (IN MANE)
     Route: 048
  7. ABILIFY [Concomitant]
     Dosage: 30 MG, MANE
     Route: 048
  8. VALPROATE SODIUM [Concomitant]
     Dosage: 1 G, BID, (TWICE DAILY)
     Route: 048

REACTIONS (2)
  - SUICIDAL IDEATION [None]
  - HALLUCINATION, AUDITORY [None]
